FAERS Safety Report 11211906 (Version 1)
Quarter: 2015Q2

REPORT INFORMATION
  Report Type: Spontaneous
  Country: BA (occurrence: BA)
  Receive Date: 20150623
  Receipt Date: 20150623
  Transmission Date: 20150821
  Serious: Yes (Other)
  Sender: FDA-Public Use
  Company Number: BA-MYLANLABS-2015M1020335

PATIENT

DRUGS (1)
  1. TAMOXIFEN [Suspect]
     Active Substance: TAMOXIFEN
     Indication: BREAST CANCER
     Dosage: 20MG/DAY
     Route: 065

REACTIONS (2)
  - Optic atrophy [Not Recovered/Not Resolved]
  - Optic neuropathy [Not Recovered/Not Resolved]
